FAERS Safety Report 11636720 (Version 1)
Quarter: 2015Q4

REPORT INFORMATION
  Report Type: Spontaneous
  Country: US (occurrence: None)
  Receive Date: 20151015
  Receipt Date: 20151015
  Transmission Date: 20160304
  Serious: Yes (Other)
  Sender: FDA-Public Use
  Company Number: None

PATIENT
  Age: 60 Year
  Sex: Male
  Weight: 94.35 kg

DRUGS (2)
  1. HARVONI [Concomitant]
     Active Substance: LEDIPASVIR\SOFOSBUVIR
  2. HARVONI [Suspect]
     Active Substance: LEDIPASVIR\SOFOSBUVIR
     Indication: CHRONIC HEPATITIS C
     Route: 048
     Dates: start: 20150718, end: 20151001

REACTIONS (6)
  - Fatigue [None]
  - Feeling abnormal [None]
  - Impaired work ability [None]
  - Headache [None]
  - Road traffic accident [None]
  - Amnesia [None]

NARRATIVE: CASE EVENT DATE: 20151014
